FAERS Safety Report 21065183 (Version 1)
Quarter: 2022Q3

REPORT INFORMATION
  Report Type: Spontaneous
  Country: US (occurrence: None)
  Receive Date: 20220711
  Receipt Date: 20220711
  Transmission Date: 20221027
  Serious: Yes (Other)
  Sender: FDA-Public Use
  Company Number: None

PATIENT
  Age: 35 Year
  Sex: Female
  Weight: 85.5 kg

DRUGS (5)
  1. OMEPRAZOLE [Suspect]
     Active Substance: OMEPRAZOLE
     Indication: Gastrooesophageal reflux disease
     Dosage: OTHER QUANTITY : 1 TABLET(S);?
     Route: 048
     Dates: start: 20220706, end: 20220708
  2. LAMOTRIGINE [Concomitant]
     Active Substance: LAMOTRIGINE
  3. TRAZODONE [Concomitant]
     Active Substance: TRAZODONE HYDROCHLORIDE
  4. PROPRANOLOL [Concomitant]
     Active Substance: PROPRANOLOL HYDROCHLORIDE
  5. RIZATRIPTAN [Concomitant]
     Active Substance: RIZATRIPTAN

REACTIONS (6)
  - Migraine [None]
  - Nausea [None]
  - Neck pain [None]
  - Headache [None]
  - Photosensitivity reaction [None]
  - Hyperacusis [None]

NARRATIVE: CASE EVENT DATE: 20220706
